FAERS Safety Report 15720296 (Version 1)
Quarter: 2018Q4

REPORT INFORMATION
  Report Type: Spontaneous
  Country: US (occurrence: US)
  Receive Date: 20181213
  Receipt Date: 20181213
  Transmission Date: 20190205
  Serious: No
  Sender: FDA-Public Use
  Company Number: US-PERRIGO-18US005561

PATIENT
  Age: 67 Year
  Sex: Female

DRUGS (1)
  1. MUPIROCIN. [Suspect]
     Active Substance: MUPIROCIN
     Indication: ACNE
     Dosage: UNK, UNK
     Route: 061
     Dates: start: 2018

REACTIONS (2)
  - Therapeutic response unexpected [Unknown]
  - Off label use [Unknown]
